FAERS Safety Report 7333284-0 (Version None)
Quarter: 2011Q1

REPORT INFORMATION
  Report Type: 
  Country: None (occurrence: None)
  Receive Date: 20110304
  Receipt Date: 20110221
  Transmission Date: 20110831
  Serious: Yes (Hospitalization, Other)
  Sender: FDA-Public Use
  Company Number: US-ELI_LILLY_AND_COMPANY-US201102005681

PATIENT
  Sex: Male

DRUGS (7)
  1. ZYPREXA [Suspect]
     Indication: SCHIZOPHRENIA
     Dates: start: 20000101, end: 20030101
  2. HUMALOG [Suspect]
     Dosage: 50 IU, EACH EVENING
  3. PROVIGIL [Concomitant]
  4. HUMALOG [Suspect]
     Indication: DIABETES MELLITUS
     Dosage: 50 IU, EACH MORNING
  5. COGENTIN [Concomitant]
  6. LANTUS [Concomitant]
     Dosage: 200 IU, DAILY (1/D)
  7. CLARITIN [Concomitant]
     Indication: HYPERSENSITIVITY

REACTIONS (21)
  - HYPOGLYCAEMIC UNCONSCIOUSNESS [None]
  - HUNGER [None]
  - HYPERSOMNIA [None]
  - NOCTURIA [None]
  - MENTAL DISORDER [None]
  - LACK OF SATIETY [None]
  - RENAL DISORDER [None]
  - DYSPHAGIA [None]
  - SLEEP APNOEA SYNDROME [None]
  - HAEMATEMESIS [None]
  - VOMITING [None]
  - HYPERPHAGIA [None]
  - HYPOPHAGIA [None]
  - EUPHORIC MOOD [None]
  - WEIGHT INCREASED [None]
  - HYPERTENSION [None]
  - PANIC ATTACK [None]
  - DYSPEPSIA [None]
  - METABOLIC DISORDER [None]
  - BLOOD GLUCOSE INCREASED [None]
  - DIZZINESS [None]
